FAERS Safety Report 20181087 (Version 1)
Quarter: 2021Q4

REPORT INFORMATION
  Report Type: Report from Study
  Country: CO (occurrence: CO)
  Receive Date: 20211214
  Receipt Date: 20211214
  Transmission Date: 20220303
  Serious: Yes (Other)
  Sender: FDA-Public Use
  Company Number: CO-JNJFOC-20211224551

PATIENT
  Age: 51 Year
  Sex: Female
  Weight: 62 kg

DRUGS (6)
  1. SIMPONI [Suspect]
     Active Substance: GOLIMUMAB
     Indication: Rheumatoid arthritis
     Route: 058
     Dates: start: 20211027
  2. CLINDAMYCIN [Concomitant]
     Active Substance: CLINDAMYCIN
  3. CHLOROQUINE [Concomitant]
     Active Substance: CHLOROQUINE
  4. INFLIXIMAB [Concomitant]
     Active Substance: INFLIXIMAB
  5. PREDNISOLONE [Concomitant]
     Active Substance: PREDNISOLONE
  6. METHOTREXATE [Concomitant]
     Active Substance: METHOTREXATE

REACTIONS (1)
  - Cellulitis [Not Recovered/Not Resolved]

NARRATIVE: CASE EVENT DATE: 20211206
